FAERS Safety Report 9126825 (Version 1)
Quarter: 2013Q1

REPORT INFORMATION
  Report Type: Spontaneous
  Country: US (occurrence: US)
  Receive Date: 20130122
  Receipt Date: 20130122
  Transmission Date: 20140127
  Serious: No
  Sender: FDA-Public Use
  Company Number: US-PFIZER INC-2013024439

PATIENT
  Age: 78 Year
  Sex: Female
  Weight: 92.97 kg

DRUGS (7)
  1. FLECTOR [Suspect]
     Indication: PAIN IN EXTREMITY
     Dosage: UNK
     Dates: start: 201212, end: 201212
  2. FLECTOR [Suspect]
     Indication: BACK PAIN
  3. LISINOPRIL [Concomitant]
     Indication: HYPERTENSION
     Dosage: 10 MG, DAILY
  4. ATENOLOL [Concomitant]
     Indication: HYPERTENSION
     Dosage: 25 MG, DAILY
  5. LEVOTHYROXINE [Concomitant]
     Indication: THYROID DISORDER
     Dosage: 25 UG, DAILY
  6. CELEBREX [Concomitant]
     Indication: PAIN IN EXTREMITY
     Dosage: 200 MG, DAILY
  7. CORTISONE [Concomitant]
     Indication: PAIN IN EXTREMITY
     Dosage: UNK

REACTIONS (1)
  - Influenza like illness [Recovered/Resolved]
